FAERS Safety Report 9373751 (Version 2)
Quarter: 2013Q3

REPORT INFORMATION
  Report Type: Spontaneous
  Country: IT (occurrence: IT)
  Receive Date: 20130628
  Receipt Date: 20130712
  Transmission Date: 20140515
  Serious: Yes (Hospitalization)
  Sender: FDA-Public Use
  Company Number: IT-PFIZER INC-2013188174

PATIENT
  Age: 62 Year
  Sex: Female

DRUGS (2)
  1. CISPLATIN [Suspect]
     Indication: PERITONEAL MESOTHELIOMA MALIGNANT
     Dosage: 120 MG, CYCLIC, CONCENTRATE FOR SOLUTION FOR INFUSION
     Route: 042
     Dates: start: 20130524, end: 20130524
  2. ALIMTA [Suspect]
     Indication: PERITONEAL MESOTHELIOMA MALIGNANT
     Dosage: 800 MG, CYCLIC
     Route: 042
     Dates: start: 20130524, end: 20130524

REACTIONS (2)
  - Mucosal inflammation [Recovered/Resolved]
  - Intestinal obstruction [Recovered/Resolved]
